FAERS Safety Report 18167489 (Version 1)
Quarter: 2020Q3

REPORT INFORMATION
  Report Type: Spontaneous
  Country: DE (occurrence: DE)
  Receive Date: 20200818
  Receipt Date: 20200818
  Transmission Date: 20201103
  Serious: Yes (Other)
  Sender: FDA-Public Use
  Company Number: DE-MYLANLABS-2020M1071335

PATIENT
  Age: 60 Year
  Sex: Male
  Weight: 82 kg

DRUGS (2)
  1. CANDESARTAN. [Suspect]
     Active Substance: CANDESARTAN
     Indication: HYPERTENSION
     Dosage: DAILY DOSE: 32 MG MILLGRAM(S) EVERY DAYS
     Route: 048
     Dates: start: 20191001, end: 20191101
  2. CANDESARTAN. [Suspect]
     Active Substance: CANDESARTAN
     Indication: HYPERTENSION
     Dosage: 16 MG, UNKNOWN ( 0?0?1)
     Route: 065
     Dates: start: 2019, end: 2019

REACTIONS (6)
  - Muscular weakness [Unknown]
  - Asthenia [Unknown]
  - Oedema peripheral [Unknown]
  - Rhabdomyolysis [Recovered/Resolved]
  - Blood pressure fluctuation [Recovered/Resolved]
  - Fatigue [Unknown]

NARRATIVE: CASE EVENT DATE: 2019
